FAERS Safety Report 21666319 (Version 1)
Quarter: 2022Q4

REPORT INFORMATION
  Report Type: Spontaneous
  Country: FR (occurrence: FR)
  Receive Date: 20221201
  Receipt Date: 20221201
  Transmission Date: 20230113
  Serious: Yes (Hospitalization)
  Sender: FDA-Public Use
  Company Number: None

PATIENT
  Age: 78 Year
  Sex: Male
  Weight: 51 kg

DRUGS (5)
  1. TENOFOVIR DISOPROXIL FUMARATE [Suspect]
     Active Substance: TENOFOVIR DISOPROXIL FUMARATE
     Indication: Chronic hepatitis B
     Dosage: FUMARATE DE TENOFOVIR DISOPROXIL  ,UNIT DOSE : 245 MG   , FREQUENCY TIME : 1 DAY  , DURATION : 12 YE
     Dates: start: 200903, end: 20211010
  2. TAMSULOSIN HYDROCHLORIDE [Concomitant]
     Active Substance: TAMSULOSIN HYDROCHLORIDE
     Indication: Benign prostatic hyperplasia
     Dosage: CHLORHYDRATE DE TAMSULOSINE , UNIT DOSE :  0.4 MG  , FREQUENCY TIME : 1 DAY
  3. METFORMIN HYDROCHLORIDE [Concomitant]
     Active Substance: METFORMIN HYDROCHLORIDE
     Indication: Type 2 diabetes mellitus
     Dosage: CHLORHYDRATE DE METFORMINE , UNIT DOSE : 850 MG   , FREQUENCY TIME : 8 HOUR
     Dates: end: 20211010
  4. JANUVIA [Concomitant]
     Active Substance: SITAGLIPTIN PHOSPHATE
     Indication: Type 2 diabetes mellitus
     Dosage: UNIT DOSE : 1 DF  , FREQUENCY TIME : 1 DAY
     Dates: end: 20211010
  5. DUTASTERIDE [Concomitant]
     Active Substance: DUTASTERIDE
     Indication: Benign prostatic hyperplasia
     Dosage: UNIT DOSE :  0.5 MG  , FREQUENCY TIME :  1 DAY

REACTIONS (1)
  - Fanconi syndrome acquired [Recovered/Resolved]

NARRATIVE: CASE EVENT DATE: 20211007
